FAERS Safety Report 6368553-4 (Version None)
Quarter: 2009Q3

REPORT INFORMATION
  Report Type: 
  Country: None (occurrence: None)
  Receive Date: 20090922
  Receipt Date: 20090911
  Transmission Date: 20100115
  Serious: Yes (Hospitalization, Other)
  Sender: FDA-Public Use
  Company Number: JP-JNJFOC-20090607601

PATIENT
  Sex: Male
  Weight: 65 kg

DRUGS (11)
  1. REMICADE [Suspect]
     Dosage: 3 INFUSIONS TOTAL
     Route: 042
     Dates: start: 20080725, end: 20080906
  2. REMICADE [Suspect]
     Route: 042
     Dates: start: 20080725, end: 20080906
  3. REMICADE [Suspect]
     Indication: CROHN'S DISEASE
     Dosage: 2 INFUSIONS ON UNSPECIFIED DATES
     Route: 042
     Dates: start: 20080725, end: 20080906
  4. AMINO ACIDS [Concomitant]
     Indication: CROHN'S DISEASE
     Dosage: ^2LT^
  5. VITAMIN [Concomitant]
     Indication: CROHN'S DISEASE
     Dosage: ^2LT^
  6. GLUCOSE [Concomitant]
     Indication: CROHN'S DISEASE
     Dosage: ^2LT^
  7. INTRAFAT [Concomitant]
  8. PREDNISOLONE [Concomitant]
  9. RHYTHMY [Concomitant]
     Route: 048
  10. PENTASA [Concomitant]
     Route: 048
  11. GASTER [Concomitant]
     Route: 048

REACTIONS (2)
  - ABSCESS [None]
  - LIVER ABSCESS [None]
